FAERS Safety Report 4964911-0 (Version None)
Quarter: 2006Q1

REPORT INFORMATION
  Report Type: 
  Country: None (occurrence: None)
  Receive Date: 20060130
  Receipt Date: 20051118
  Transmission Date: 20060701
  Serious: Yes (Other)
  Sender: FDA-Public Use
  Company Number: 143766USA

PATIENT
  Age: 57 Year
  Sex: Male
  Weight: 78.0187 kg

DRUGS (5)
  1. COPAXONE [Suspect]
     Indication: MULTIPLE SCLEROSIS
     Dates: start: 19980507
  2. ASPIRIN [Concomitant]
  3. ATENOLOL [Concomitant]
  4. ZANTAC [Concomitant]
  5. ZOCOR [Concomitant]

REACTIONS (2)
  - INJECTION SITE ABSCESS [None]
  - MYCOBACTERIUM ABSCESSUS INFECTION [None]
